FAERS Safety Report 21668742 (Version 4)
Quarter: 2023Q1

REPORT INFORMATION
  Report Type: Spontaneous
  Country: CA (occurrence: CA)
  Receive Date: 20221201
  Receipt Date: 20230126
  Transmission Date: 20230418
  Serious: Yes (Other)
  Sender: FDA-Public Use
  Company Number: CA-002147023-NVSC2022CA246312

PATIENT
  Age: 93 Year
  Sex: Female

DRUGS (4)
  1. NEVANAC [Suspect]
     Active Substance: NEPAFENAC
     Indication: Eye pain
     Dosage: 1 DRP, TID (5 ML BOTTLE)
     Route: 047
     Dates: start: 20220929, end: 20221028
  2. NEVANAC [Suspect]
     Active Substance: NEPAFENAC
     Indication: Eye inflammation
  3. AZARGA [Concomitant]
     Active Substance: BRINZOLAMIDE\TIMOLOL MALEATE
     Indication: Product used for unknown indication
     Dosage: UNK (DROPS)
     Route: 047
  4. IOPIDINE [Concomitant]
     Active Substance: APRACLONIDINE HYDROCHLORIDE
     Indication: Product used for unknown indication
     Dosage: UNK (DROPS)
     Route: 047

REACTIONS (3)
  - Drug ineffective [Recovered/Resolved]
  - Liquid product physical issue [Recovered/Resolved]
  - Product quality issue [Recovered/Resolved]

NARRATIVE: CASE EVENT DATE: 20220929
